FAERS Safety Report 23668258 (Version 1)
Quarter: 2024Q1

REPORT INFORMATION
  Report Type: Spontaneous
  Country: CH (occurrence: CH)
  Receive Date: 20240325
  Receipt Date: 20240325
  Transmission Date: 20240410
  Serious: Yes (Life-Threatening, Hospitalization, Other)
  Sender: FDA-Public Use
  Company Number: None

PATIENT
  Age: 68 Year
  Sex: Female
  Weight: 58.8 kg

DRUGS (3)
  1. GILENYA [Suspect]
     Active Substance: FINGOLIMOD HYDROCHLORIDE
     Indication: Multiple sclerosis
     Dosage: 0.5 MG, QD
     Route: 048
     Dates: end: 20240220
  2. ACYCLOVIR [Suspect]
     Active Substance: ACYCLOVIR
     Indication: Herpes zoster meningoencephalitis
     Dosage: 900 MG, Q8H (UNSPECIFIED SPECIALTY)
     Route: 042
     Dates: start: 20240220, end: 20240224
  3. PREDNISONE [Suspect]
     Active Substance: PREDNISONE
     Indication: Herpes zoster meningoencephalitis
     Dosage: 1 MG/KG (UNSPECIFIED SPECIALTY)
     Route: 048
     Dates: start: 20240220, end: 20240224

REACTIONS (5)
  - Herpes zoster meningoencephalitis [Not Recovered/Not Resolved]
  - Prescribed overdose [Recovered/Resolved]
  - Agitation [Recovered/Resolved]
  - Lymphopenia [Unknown]
  - Acute kidney injury [Recovered/Resolved]

NARRATIVE: CASE EVENT DATE: 20240220
